FAERS Safety Report 9922013 (Version 1)
Quarter: 2014Q1

REPORT INFORMATION
  Report Type: Spontaneous
  Country: US (occurrence: None)
  Receive Date: 20140221
  Receipt Date: 20140221
  Transmission Date: 20141002
  Serious: Yes (Other)
  Sender: FDA-Public Use
  Company Number: None

PATIENT
  Age: 72 Year
  Sex: Female
  Weight: 54.43 kg

DRUGS (9)
  1. FLUOCINONIDE [Suspect]
     Indication: SKIN DISORDER
     Dosage: 1 APPLICATION  RX 2 X QDAY 2-}3 WKS  ON THE SKIN
     Route: 061
     Dates: start: 20140121, end: 20140123
  2. FLUOCINONIDE [Suspect]
     Indication: BASAL CELL CARCINOMA
     Dosage: 1 APPLICATION  RX 2 X QDAY 2-}3 WKS  ON THE SKIN
     Route: 061
     Dates: start: 20140121, end: 20140123
  3. ESTER C [Concomitant]
  4. CALCIUM WITH VIT D [Concomitant]
  5. ONE-A-DAY VITAMIN [Concomitant]
  6. ONE-A-DAY VITAMIN [Concomitant]
  7. VITAMIN D3 [Concomitant]
  8. ANTI-FUNGAL PEN [Concomitant]
  9. UNDECYLENIC ACID 25% [Concomitant]

REACTIONS (1)
  - Alopecia [None]
